FAERS Safety Report 11428247 (Version 1)
Quarter: 2015Q3

REPORT INFORMATION
  Report Type: Spontaneous
  Country: US (occurrence: US)
  Receive Date: 20150828
  Receipt Date: 20150828
  Transmission Date: 20151125
  Serious: No
  Sender: FDA-Public Use
  Company Number: US-ROCHE-1274211

PATIENT
  Sex: Male

DRUGS (2)
  1. RIBAVIRIN. [Suspect]
     Active Substance: RIBAVIRIN
     Indication: CHRONIC HEPATITIS C
     Dosage: 600 MG+400 MG. 24 WEEKS OF THERAPY.
     Route: 048
     Dates: start: 20130830
  2. PEGASYS [Suspect]
     Active Substance: PEGINTERFERON ALFA-2A
     Indication: CHRONIC HEPATITIS C
     Dosage: 24 WEEKS OF THERAPY.
     Route: 058
     Dates: start: 20130830

REACTIONS (4)
  - Fatigue [Unknown]
  - Malaise [Unknown]
  - Nausea [Unknown]
  - Poor quality drug administered [Unknown]
